FAERS Safety Report 7196875-6 (Version None)
Quarter: 2010Q4

REPORT INFORMATION
  Report Type: 
  Country: None (occurrence: None)
  Receive Date: 20101223
  Receipt Date: 20101217
  Transmission Date: 20110411
  Serious: Yes (Other)
  Sender: FDA-Public Use
  Company Number: US-AMGEN-USASP2010009933

PATIENT

DRUGS (9)
  1. NEULASTA [Suspect]
     Indication: CHEMOTHERAPY
     Dosage: 6 MG, UNK
     Dates: start: 20100101
  2. ADRIAMYCIN PFS [Concomitant]
  3. CYTOXAN [Concomitant]
  4. VICODIN [Concomitant]
  5. ZEGERID                            /00661201/ [Concomitant]
  6. VITAMIN A [Concomitant]
  7. NEURONTIN [Concomitant]
  8. MECLIZINE HYDROCHLORIDE [Concomitant]
  9. GABAPENTIN [Concomitant]

REACTIONS (3)
  - DYSPNOEA [None]
  - HEART RATE INCREASED [None]
  - HYPOTHYROIDISM [None]
